FAERS Safety Report 7490003-5 (Version None)
Quarter: 2011Q2

REPORT INFORMATION
  Report Type: 
  Country: None (occurrence: None)
  Receive Date: 20110519
  Receipt Date: 20110401
  Transmission Date: 20111010
  Serious: Yes (Hospitalization)
  Sender: FDA-Public Use
  Company Number: FR-JNJFOC-20110401121

PATIENT
  Age: 70 Year
  Sex: Female

DRUGS (4)
  1. CLINDAMYCIN HCL [Suspect]
     Indication: ARTHRITIS INFECTIVE
     Route: 065
     Dates: start: 20090201, end: 20090429
  2. OFLOXACIN [Suspect]
     Indication: ARTHRITIS INFECTIVE
     Route: 065
     Dates: start: 20090201, end: 20090429
  3. RIFADIN [Suspect]
     Indication: ARTHRITIS INFECTIVE
     Route: 065
     Dates: start: 20090601, end: 20090601
  4. VANCOMYCINE HYDROCHLORIDE [Suspect]
     Indication: ARTHRITIS INFECTIVE
     Route: 065
     Dates: start: 20090601, end: 20090815

REACTIONS (5)
  - RASH [None]
  - CHILLS [None]
  - MALAISE [None]
  - RASH MACULO-PAPULAR [None]
  - EOSINOPHILIA [None]
